FAERS Safety Report 7605706-9 (Version None)
Quarter: 2011Q3

REPORT INFORMATION
  Report Type: 
  Country: None (occurrence: None)
  Receive Date: 20110713
  Receipt Date: 20110706
  Transmission Date: 20111222
  Serious: Yes (Disabling)
  Sender: FDA-Public Use
  Company Number: US-PFIZER INC-2011152378

PATIENT
  Sex: Female
  Weight: 58.957 kg

DRUGS (4)
  1. RAPAMUNE [Suspect]
     Indication: ACUTE MYELOID LEUKAEMIA
     Dosage: UNKN DOSE ONCE DAILY
     Route: 048
     Dates: start: 20080801
  2. ACYCLOVIR [Concomitant]
     Dosage: 800 MG, UNK
  3. RAPAMUNE [Suspect]
     Indication: BONE MARROW TRANSPLANT
     Dosage: 1MG DAILY
     Route: 048
     Dates: start: 20100801
  4. SIMVASTATIN [Concomitant]
     Dosage: 20 MG, UNK

REACTIONS (1)
  - DEPRESSION [None]
